FAERS Safety Report 7744887-3 (Version None)
Quarter: 2011Q3

REPORT INFORMATION
  Report Type: 
  Country: None (occurrence: None)
  Receive Date: 20110912
  Receipt Date: 20110831
  Transmission Date: 20111222
  Serious: Yes (Hospitalization)
  Sender: FDA-Public Use
  Company Number: US-CELGENEUS-163-21880-11072225

PATIENT
  Sex: Female
  Weight: 57 kg

DRUGS (14)
  1. REVLIMID [Suspect]
     Dosage: 5 MILLIGRAM
     Route: 048
     Dates: start: 20100801
  2. LACTULOSE [Concomitant]
     Route: 065
  3. ALPRAZOLAM [Concomitant]
     Route: 065
  4. DIOVAN [Concomitant]
     Route: 065
  5. RANEXA [Concomitant]
     Route: 065
  6. VICODIN [Concomitant]
     Route: 065
  7. CARVEDILOL [Concomitant]
     Route: 065
  8. HYDROXINE [Concomitant]
     Route: 065
  9. REVLIMID [Suspect]
     Dosage: 5 MILLIGRAM
     Route: 048
     Dates: start: 20110527
  10. DAILY VITE [Concomitant]
     Route: 065
  11. RENVELA [Concomitant]
     Route: 065
  12. AMLODIPINE [Concomitant]
     Route: 065
  13. CEFUROXIME [Concomitant]
     Route: 065
  14. LIPITOR [Concomitant]
     Route: 065

REACTIONS (7)
  - HEPATIC FUNCTION ABNORMAL [None]
  - NEUTROPENIA [None]
  - FALL [None]
  - HEAD INJURY [None]
  - CARDIAC FAILURE CONGESTIVE [None]
  - DIARRHOEA [None]
  - AMMONIA INCREASED [None]
